FAERS Safety Report 8682313 (Version 2)
Quarter: 2013Q1

REPORT INFORMATION
  Report Type: Spontaneous
  Country: US (occurrence: US)
  Receive Date: 20120725
  Receipt Date: 20130228
  Transmission Date: 20140127
  Serious: Yes (Hospitalization)
  Sender: FDA-Public Use
  Company Number: US-BAYER-2012-074037

PATIENT
  Age: 51 Year
  Sex: Female
  Weight: 65.76 kg

DRUGS (13)
  1. YAZ [Suspect]
     Dosage: UNK
     Dates: start: 201005, end: 201010
  2. YAZ [Suspect]
     Dosage: UNK
     Dates: start: 20081209, end: 200911
  3. YAZ [Suspect]
     Dosage: UNK
     Dates: start: 20090114, end: 201006
  4. YAZ [Suspect]
     Dosage: UNK
     Dates: start: 200912, end: 201010
  5. GIANVI [Suspect]
     Indication: CONTRACEPTION
     Dosage: UNK
     Dates: start: 20100621, end: 20101002
  6. GIANVI [Suspect]
     Indication: DYSFUNCTIONAL UTERINE BLEEDING
  7. LORAZEPAM [Concomitant]
     Dosage: 1 MG,TAKE ONE-HALF TO ONE TABLET AS NEEDED AS DIRECTED
     Route: 048
  8. ISOMETHEPTENE/DICHLORALPHENAZONE/APAP [Concomitant]
     Dosage: TAKE 1 OR 2 CAPSULES AT THE ONSET OF MIGRAINE TWICE DAILY
     Route: 048
  9. CITALOPRAM [Concomitant]
     Dosage: 20 MG,TAKE ONE TABLET EVERY DAILY
     Route: 048
  10. MULTIVITAMIN [Concomitant]
     Dosage: ONE TABLET DAILY
     Route: 048
  11. PERCOCET [Concomitant]
  12. NORCO [Concomitant]
  13. NEOSPORIN TOPICAL [Concomitant]

REACTIONS (11)
  - Deep vein thrombosis [None]
  - Injury [None]
  - Pain [None]
  - Emotional distress [None]
  - General physical health deterioration [None]
  - Anxiety [None]
  - Pain [None]
  - Pain in extremity [None]
  - Local swelling [None]
  - Thrombophlebitis superficial [None]
  - Menorrhagia [None]
